FAERS Safety Report 7709089-5 (Version None)
Quarter: 2011Q3

REPORT INFORMATION
  Report Type: 
  Country: None (occurrence: None)
  Receive Date: 20110825
  Receipt Date: 20110817
  Transmission Date: 20111222
  Serious: Yes (Hospitalization)
  Sender: FDA-Public Use
  Company Number: FI-MILLENNIUM PHARMACEUTICALS, INC.-2011-03432

PATIENT

DRUGS (10)
  1. HYDROCORTISONE [Concomitant]
     Dosage: 1 %, UNK
     Dates: start: 20110802
  2. OMEPRAZOLE [Concomitant]
     Dosage: 20 MG, UNK
     Route: 048
     Dates: start: 20110623
  3. MIACALCIN [Concomitant]
     Dosage: 200 IU, UNK
     Dates: start: 20110702
  4. OXYCODONE HCL [Concomitant]
     Dosage: 60 MG, UNK
     Route: 048
     Dates: start: 20110708
  5. ACLOVIR [Concomitant]
     Dosage: 400 MG, UNK
     Route: 048
     Dates: start: 20110708
  6. DEXAMETHASONE [Suspect]
     Indication: MULTIPLE MYELOMA
     Dosage: 40 MG, UNK
     Route: 048
     Dates: start: 20110715, end: 20110726
  7. POTASSIUM CHLORIDE [Concomitant]
     Dosage: 1 G, BID
     Route: 048
     Dates: start: 20110627
  8. COTRIM [Concomitant]
     Dosage: 400 MG, UNK
     Route: 048
     Dates: start: 20110708, end: 20110802
  9. KALCIPOS [Concomitant]
     Dosage: 1000 MG, UNK
     Route: 048
     Dates: start: 20110802
  10. VELCADE [Suspect]
     Indication: MULTIPLE MYELOMA
     Dosage: 2.5 MG, CYCLIC
     Route: 042
     Dates: start: 20110715, end: 20110725

REACTIONS (1)
  - INFECTION [None]
